FAERS Safety Report 19217331 (Version 1)
Quarter: 2021Q2

REPORT INFORMATION
  Report Type: Spontaneous
  Country: BE (occurrence: BE)
  Receive Date: 20210505
  Receipt Date: 20210505
  Transmission Date: 20210717
  Serious: Yes (Other)
  Sender: FDA-Public Use
  Company Number: BE-PFIZER INC-2021442786

PATIENT
  Sex: Female

DRUGS (1)
  1. SOLU?MEDROL [Suspect]
     Active Substance: METHYLPREDNISOLONE SODIUM SUCCINATE
     Indication: TOXICITY TO VARIOUS AGENTS
     Dosage: UNK

REACTIONS (3)
  - Off label use [Unknown]
  - Toxicity to various agents [Unknown]
  - Condition aggravated [Unknown]
